FAERS Safety Report 23441480 (Version 5)
Quarter: 2024Q4

REPORT INFORMATION
  Report Type: Spontaneous
  Country: PT (occurrence: PT)
  Receive Date: 20240125
  Receipt Date: 20241207
  Transmission Date: 20250114
  Serious: Yes (Death)
  Sender: ROCHE
  Company Number: PT-TEVA-VS-3140982

PATIENT
  Age: 60 Year
  Sex: Male

DRUGS (19)
  1. RITUXIMAB [Suspect]
     Active Substance: RITUXIMAB
     Indication: Angiocentric lymphoma
     Route: 065
  2. RITUXIMAB [Suspect]
     Active Substance: RITUXIMAB
     Indication: T-cell lymphoma refractory
  3. VINCRISTINE [Suspect]
     Active Substance: VINCRISTINE
     Indication: Angiocentric lymphoma
     Route: 065
  4. VINCRISTINE [Suspect]
     Active Substance: VINCRISTINE
     Indication: T-cell lymphoma refractory
  5. DEXAMETHASONE ACETATE [Suspect]
     Active Substance: DEXAMETHASONE ACETATE
     Indication: Angiocentric lymphoma
     Route: 065
  6. DEXAMETHASONE ACETATE [Suspect]
     Active Substance: DEXAMETHASONE ACETATE
     Indication: T-cell lymphoma refractory
  7. ETOPOSIDE [Suspect]
     Active Substance: ETOPOSIDE
     Indication: Angiocentric lymphoma
     Route: 065
  8. ETOPOSIDE [Suspect]
     Active Substance: ETOPOSIDE
     Indication: T-cell lymphoma refractory
  9. CARBOPLATIN [Suspect]
     Active Substance: CARBOPLATIN
     Indication: Angiocentric lymphoma
     Route: 065
  10. CARBOPLATIN [Suspect]
     Active Substance: CARBOPLATIN
     Indication: T-cell lymphoma refractory
  11. DOXORUBICIN [Suspect]
     Active Substance: DOXORUBICIN
     Indication: Angiocentric lymphoma
     Route: 065
  12. DOXORUBICIN [Suspect]
     Active Substance: DOXORUBICIN
     Indication: T-cell lymphoma refractory
  13. IFOSFAMIDE [Suspect]
     Active Substance: IFOSFAMIDE
     Indication: Angiocentric lymphoma
     Route: 065
  14. IFOSFAMIDE [Suspect]
     Active Substance: IFOSFAMIDE
     Indication: T-cell lymphoma refractory
  15. PREDNISOLONE [Suspect]
     Active Substance: PREDNISOLONE
     Indication: T-cell lymphoma refractory
     Route: 065
  16. CYCLOPHOSPHAMIDE [Suspect]
     Active Substance: CYCLOPHOSPHAMIDE
     Indication: T-cell lymphoma refractory
     Route: 065
  17. INFLIXIMAB [Suspect]
     Active Substance: INFLIXIMAB
     Indication: Ankylosing spondylitis
     Dosage: FOR THE PAST 9 YEARS
     Route: 065
     Dates: start: 2013
  18. INFLIXIMAB [Suspect]
     Active Substance: INFLIXIMAB
     Indication: Autoimmune haemolytic anaemia
  19. PREDNISONE [Concomitant]
     Active Substance: PREDNISONE
     Indication: Autoimmune haemolytic anaemia

REACTIONS (7)
  - Drug ineffective [Fatal]
  - Gastrointestinal toxicity [Fatal]
  - Hepatosplenomegaly [Fatal]
  - Epstein-Barr virus test positive [Fatal]
  - Haematotoxicity [Fatal]
  - Infection [Fatal]
  - Haematological infection [Fatal]
